FAERS Safety Report 4777436-2 (Version None)
Quarter: 2005Q3

REPORT INFORMATION
  Report Type: 
  Country: None (occurrence: None)
  Receive Date: 20050915
  Receipt Date: 20050829
  Transmission Date: 20060218
  Serious: Yes (Hospitalization, Other)
  Sender: FDA-Public Use
  Company Number: US_0406103889

PATIENT
  Age: 6 Year
  Sex: Male
  Weight: 20 kg

DRUGS (7)
  1. HUMATROPE [Suspect]
     Indication: GROWTH HORMONE DEFICIENCY
     Dosage: 1 MG/6 WEEK
     Dates: start: 20040304, end: 20040623
  2. CORTEF [Concomitant]
  3. SYNTHROID [Concomitant]
  4. ZYRTEC [Concomitant]
  5. BACTRIM [Concomitant]
  6. PHENOBARBITAL TAB [Concomitant]
  7. REGLAN [Concomitant]

REACTIONS (6)
  - BONE MARROW TRANSPLANT [None]
  - CONVULSION [None]
  - HAEMATOCRIT DECREASED [None]
  - HAEMOGLOBIN DECREASED [None]
  - NEOPLASM RECURRENCE [None]
  - PRIMITIVE NEUROECTODERMAL TUMOUR [None]
